FAERS Safety Report 22061122 (Version 2)
Quarter: 2023Q2

REPORT INFORMATION
  Report Type: Spontaneous
  Country: NL (occurrence: None)
  Receive Date: 20230303
  Receipt Date: 20230404
  Transmission Date: 20230722
  Serious: Yes (Other)
  Sender: FDA-Public Use
  Company Number: NL-Merck Healthcare KGaA-9386744

PATIENT
  Sex: Female
  Weight: 61 kg

DRUGS (5)
  1. EUTHYROX [Suspect]
     Active Substance: LEVOTHYROXINE SODIUM
     Indication: Product used for unknown indication
  2. OMEPRAZOLE [Concomitant]
     Active Substance: OMEPRAZOLE
     Indication: Product used for unknown indication
  3. ECHINAFORCE [ECHINACEA PURPUREA] [Concomitant]
     Indication: Product used for unknown indication
  4. COVID-19 VACCINE [Concomitant]
     Indication: COVID-19 immunisation
     Dates: start: 20221019
  5. CALCIUM;MAGNESIUM HYDROXIDE;ZINC [Concomitant]
     Indication: Product used for unknown indication

REACTIONS (1)
  - Renal impairment [Unknown]
